FAERS Safety Report 15061049 (Version 5)
Quarter: 2019Q2

REPORT INFORMATION
  Report Type: Spontaneous
  Country: US (occurrence: US)
  Receive Date: 20180625
  Receipt Date: 20190530
  Transmission Date: 20190711
  Serious: Yes (Hospitalization, Other)
  Sender: FDA-Public Use
  Company Number: US-PFIZER INC-2018254550

PATIENT
  Age: 56 Year
  Sex: Female

DRUGS (6)
  1. DILANTIN [Suspect]
     Active Substance: PHENYTOIN
     Indication: SEIZURE
     Dosage: UNK
     Route: 048
  2. FLONASE [Concomitant]
     Active Substance: FLUTICASONE PROPIONATE
     Dosage: AS DIRECTED, 2 SPRAYS DAILY
     Dates: start: 20180910, end: 20190220
  3. PROTONIX [Concomitant]
     Active Substance: PANTOPRAZOLE SODIUM
     Dosage: 1 DF, DAILY
     Route: 048
     Dates: start: 20180910, end: 20190220
  4. QVAR [Concomitant]
     Active Substance: BECLOMETHASONE DIPROPIONATE
     Dosage: INHALE 2 PUFFS BY INHALATION ROUTE, 2X/DAY
     Dates: start: 20180126
  5. PROTONIX [Concomitant]
     Active Substance: PANTOPRAZOLE SODIUM
     Dosage: 1 DF, ONCE TO TWICE DAILY IF NEEDED
     Route: 048
     Dates: start: 20190220
  6. CLARITIN [Concomitant]
     Active Substance: LORATADINE
     Dosage: 1 DF, DAILY
     Route: 048
     Dates: start: 20180404, end: 20190220

REACTIONS (7)
  - Fall [Unknown]
  - Neck pain [Unknown]
  - Ligament sprain [Unknown]
  - Contusion [Unknown]
  - Cerebellar atrophy [Unknown]
  - Fibromyalgia [Unknown]
  - Poor quality sleep [Unknown]
